FAERS Safety Report 22609018 (Version 1)
Quarter: 2023Q2

REPORT INFORMATION
  Report Type: Spontaneous
  Country: BR (occurrence: BR)
  Receive Date: 20230616
  Receipt Date: 20230616
  Transmission Date: 20230721
  Serious: Yes (Hospitalization)
  Sender: FDA-Public Use
  Company Number: BR-CADILA HEALTHCARE LIMITED-BR-ZYDUS-094201

PATIENT

DRUGS (2)
  1. TRANEXAMIC ACID [Interacting]
     Active Substance: TRANEXAMIC ACID
     Indication: Heavy menstrual bleeding
     Dosage: 50 MILLIGRAM PER MILLILITRE (1 AMPOULE)
     Route: 042
     Dates: start: 20230605, end: 20230606
  2. KETOPROFEN [Interacting]
     Active Substance: KETOPROFEN
     Indication: Product used for unknown indication
     Dosage: UNK
     Route: 042

REACTIONS (8)
  - Malaise [Recovered/Resolved]
  - Muscular weakness [Recovered/Resolved]
  - Gait inability [Recovered/Resolved]
  - Speech disorder [Recovered/Resolved]
  - Hypertension [Recovered/Resolved]
  - Blood glucose decreased [Recovered/Resolved]
  - Dizziness [Not Recovered/Not Resolved]
  - Drug interaction [Unknown]

NARRATIVE: CASE EVENT DATE: 20230605
